FAERS Safety Report 14582661 (Version 2)
Quarter: 2018Q3

REPORT INFORMATION
  Report Type: Other
  Country: ES (occurrence: ES)
  Receive Date: 20180228
  Receipt Date: 20180725
  Transmission Date: 20181010
  Serious: Yes (Hospitalization)
  Sender: FDA-Public Use
  Company Number: ES-TELIGENT, INC-IGIL20180105

PATIENT
  Age: 81 Year
  Sex: Female

DRUGS (2)
  1. CEFUROXIME SODIUM. [Suspect]
     Active Substance: CEFUROXIME SODIUM
     Indication: RESPIRATORY TRACT INFECTION
     Dosage: 250MG, BID
     Route: 042
     Dates: start: 20170524, end: 20170530
  2. GENTAMACINA [Suspect]
     Active Substance: GENTAMICIN SULFATE
     Indication: RESPIRATORY TRACT INFECTION
     Dosage: 20 MG; 1 VIAL OF 2 ML
     Route: 042
     Dates: start: 20170524, end: 20170530

REACTIONS (2)
  - Acute kidney injury [Not Recovered/Not Resolved]
  - Drug interaction [Unknown]

NARRATIVE: CASE EVENT DATE: 20170530
